FAERS Safety Report 18293421 (Version 1)
Quarter: 2020Q3

REPORT INFORMATION
  Report Type: Report from Study
  Country: JP (occurrence: JP)
  Receive Date: 20200922
  Receipt Date: 20200922
  Transmission Date: 20201103
  Serious: Yes (Life-Threatening)
  Sender: FDA-Public Use
  Company Number: JP-TEVA-2020-JP-1829567

PATIENT

DRUGS (1)
  1. DOCETAXEL. [Suspect]
     Active Substance: DOCETAXEL
     Indication: NON-SMALL CELL LUNG CANCER
     Dosage: DOCETAXEL WAS ADMINISTERED ON DAY 1 EVERY THREE WEEKS IN CYCLES
     Route: 065

REACTIONS (1)
  - Febrile neutropenia [Unknown]
